FAERS Safety Report 24119468 (Version 1)
Quarter: 2024Q3

REPORT INFORMATION
  Report Type: Spontaneous
  Country: US (occurrence: US)
  Receive Date: 20240722
  Receipt Date: 20240722
  Transmission Date: 20241017
  Serious: Yes (Hospitalization, Other)
  Sender: MERCK
  Company Number: US-BRISTOL-MYERS SQUIBB COMPANY-2024-100684

PATIENT
  Age: 78 Year
  Sex: Female
  Weight: 64.399 kg

DRUGS (10)
  1. KEYTRUDA [Suspect]
     Active Substance: PEMBROLIZUMAB
     Indication: Product used for unknown indication
     Dosage: UNK
     Dates: start: 20191014, end: 20200608
  2. SITRAVATINIB [Suspect]
     Active Substance: SITRAVATINIB
     Indication: Non-small cell lung cancer metastatic
     Dosage: 100 MG, QD
     Route: 048
     Dates: start: 20200831, end: 20200908
  3. SITRAVATINIB [Suspect]
     Active Substance: SITRAVATINIB
     Dosage: UNK
     Dates: start: 20200921
  4. NIVOLUMAB [Suspect]
     Active Substance: NIVOLUMAB
     Indication: Non-small cell lung cancer metastatic
     Dosage: 240 MG, Q2WK
     Route: 042
     Dates: start: 20200831, end: 20200831
  5. NIVOLUMAB [Suspect]
     Active Substance: NIVOLUMAB
     Dosage: UNK
     Dates: start: 20200921
  6. ALEVE [Concomitant]
     Active Substance: NAPROXEN SODIUM
     Indication: Headache
     Dosage: 220 MG, PRN
     Route: 048
     Dates: start: 20200512
  7. ELIQUIS [Concomitant]
     Active Substance: APIXABAN
     Indication: Aortic thrombosis
     Dosage: 5 MG, BID
     Route: 048
     Dates: start: 20200401
  8. LIDOCAINE AND PRILOCAINE [Concomitant]
     Active Substance: LIDOCAINE\PRILOCAINE
     Indication: Catheter management
     Dosage: 2.5-2.5%, PRN
     Route: 061
     Dates: start: 20191219
  9. POTASSIUM CHLORIDE [Concomitant]
     Active Substance: POTASSIUM CHLORIDE
     Indication: Mineral supplementation
     Dosage: 20 MEQ, BID
     Route: 048
     Dates: start: 20200512
  10. PROCHLORPERAZINE MALEATE [Concomitant]
     Active Substance: PROCHLORPERAZINE MALEATE
     Indication: Nausea
     Dosage: 10 MG, PRN
     Route: 048
     Dates: start: 20200827

REACTIONS (4)
  - Dehydration [Recovered/Resolved]
  - Acute kidney injury [Recovered/Resolved]
  - Adrenal insufficiency [Recovered/Resolved]
  - Malignant neoplasm progression [Unknown]

NARRATIVE: CASE EVENT DATE: 20200908
